FAERS Safety Report 5741982-5 (Version None)
Quarter: 2008Q2

REPORT INFORMATION
  Report Type: 
  Country: None (occurrence: None)
  Receive Date: 20080519
  Receipt Date: 20080509
  Transmission Date: 20081010
  Serious: Yes (Hospitalization)
  Sender: FDA-Public Use
  Company Number: US-MERCK-0805USA02850

PATIENT
  Age: 79 Year
  Sex: Female

DRUGS (14)
  1. PRINIVIL [Suspect]
     Indication: HYPERTENSION
     Route: 048
     Dates: end: 20060201
  2. SPIRONOLACTONE [Concomitant]
     Route: 065
  3. PREMARIN [Concomitant]
     Route: 065
  4. LEVOTHYROXINE SODIUM [Concomitant]
     Route: 065
  5. METHOTREXATE [Concomitant]
     Route: 065
  6. FOLIC ACID [Concomitant]
     Route: 065
  7. PEPCID [Concomitant]
     Route: 065
  8. LASIX [Concomitant]
     Route: 065
  9. MECLIZINE [Concomitant]
     Route: 065
  10. WARFARIN [Concomitant]
     Route: 065
  11. GLYBURIDE [Concomitant]
     Route: 065
  12. CELEBREX [Suspect]
     Route: 065
     Dates: end: 20060201
  13. COREG [Concomitant]
     Route: 065
  14. ZOCOR [Concomitant]
     Route: 065

REACTIONS (3)
  - BLOOD GLUCOSE DECREASED [None]
  - POLYURIA [None]
  - RENAL FAILURE ACUTE [None]
